FAERS Safety Report 9157114 (Version 1)
Quarter: 2013Q1

REPORT INFORMATION
  Report Type: Spontaneous
  Country: US (occurrence: None)
  Receive Date: 20130308
  Receipt Date: 20130308
  Transmission Date: 20140127
  Serious: Yes (Other)
  Sender: FDA-Public Use
  Company Number: None

PATIENT
  Age: 92 Year
  Sex: Male
  Weight: 83.46 kg

DRUGS (2)
  1. LATANOPROST [Suspect]
     Indication: RASH
     Dosage: SEE 5
  2. LATANOPROST [Suspect]
     Indication: GLAUCOMA
     Dosage: SEE 5

REACTIONS (2)
  - Vision blurred [None]
  - Rash [None]
